FAERS Safety Report 4909299-6 (Version None)
Quarter: 2006Q1

REPORT INFORMATION
  Report Type: 
  Country: None (occurrence: None)
  Receive Date: 20060210
  Receipt Date: 20060210
  Transmission Date: 20060701
  Serious: Yes (Life-Threatening, Hospitalization)
  Sender: FDA-Public Use
  Company Number: None

PATIENT
  Age: 56 Year
  Sex: Male
  Weight: 75.3 kg

DRUGS (3)
  1. METOPROLOL [Suspect]
  2. LISINOPRIL [Suspect]
     Dosage: 20 MG TAB
  3. ISOSORBIDE DINITRATE [Suspect]
     Indication: ANGINA PECTORIS
     Dosage: 40, TAKE 1 T, ORAL
     Route: 048

REACTIONS (1)
  - HYPOTENSION [None]
